FAERS Safety Report 6749293-6 (Version None)
Quarter: 2010Q2

REPORT INFORMATION
  Report Type: 
  Country: None (occurrence: None)
  Receive Date: 20100601
  Receipt Date: 20100521
  Transmission Date: 20101027
  Serious: Yes (Other)
  Sender: FDA-Public Use
  Company Number: US-BAYER-201010453NA

PATIENT
  Age: 43 Year
  Sex: Female
  Weight: 90 kg

DRUGS (7)
  1. MIRENA [Suspect]
     Indication: CONTRACEPTION
     Dosage: CONTINUOUS
     Route: 015
     Dates: start: 20071108
  2. ANTIDEPRESSANTS [Concomitant]
  3. LOMICTAL [Concomitant]
  4. CYMBALTA [Concomitant]
  5. AMBIENT [Concomitant]
  6. NASACORT [Concomitant]
  7. ASTALIN [Concomitant]

REACTIONS (3)
  - AMENORRHOEA [None]
  - HEPATIC ADENOMA [None]
  - VAGINAL DISCHARGE [None]
